FAERS Safety Report 11521201 (Version 1)
Quarter: 2015Q3

REPORT INFORMATION
  Report Type: Spontaneous
  Country: US (occurrence: US)
  Receive Date: 20150918
  Receipt Date: 20150918
  Transmission Date: 20151125
  Serious: No
  Sender: FDA-Public Use
  Company Number: CHPA2015US010928

PATIENT
  Age: 58 Year
  Sex: Male

DRUGS (1)
  1. VOLTAREN [Suspect]
     Active Substance: DICLOFENAC SODIUM
     Indication: CONTUSION
     Dosage: LITTLE BIT LIKE TWO OR THREE DROPS, ONCE/SINGLE
     Route: 061
     Dates: start: 20150917

REACTIONS (4)
  - Inappropriate schedule of drug administration [Unknown]
  - Drug administered at inappropriate site [Unknown]
  - Product use issue [Unknown]
  - Wrong technique in product usage process [Unknown]

NARRATIVE: CASE EVENT DATE: 20150917
